FAERS Safety Report 6589534-1 (Version None)
Quarter: 2010Q1

REPORT INFORMATION
  Report Type: 
  Country: None (occurrence: None)
  Receive Date: 20100212
  Receipt Date: 20091202
  Transmission Date: 20100710
  Serious: Yes (Other)
  Sender: FDA-Public Use
  Company Number: 003003

PATIENT
  Age: 47 Year
  Sex: Female

DRUGS (3)
  1. PREDNISOLONE [Suspect]
     Indication: LUPUS PNEUMONITIS
     Dates: start: 19980101, end: 20050101
  2. AZATHIOPRINE [Suspect]
     Indication: LUPUS PNEUMONITIS
     Dosage: (150 MG QD)
     Dates: start: 19980101
  3. CYCLOSPORINE [Suspect]
     Indication: LUPUS PNEUMONITIS
     Dates: start: 19980101, end: 20050101

REACTIONS (2)
  - EPSTEIN-BARR VIRUS INFECTION [None]
  - HODGKIN'S DISEASE NODULAR SCLEROSIS STAGE UNSPECIFIED [None]
